FAERS Safety Report 9540998 (Version 1)
Quarter: 2013Q3

REPORT INFORMATION
  Report Type: Spontaneous
  Country: US (occurrence: US)
  Receive Date: 20130922
  Receipt Date: 20130922
  Transmission Date: 20140515
  Serious: No
  Sender: FDA-Public Use
  Company Number: US-ALLERGAN-1213748US

PATIENT
  Sex: Male

DRUGS (3)
  1. SANCTURA XR [Suspect]
     Indication: BLADDER DISORDER
     Dosage: 60 MG, QHS
     Route: 048
     Dates: start: 20120924
  2. UNSPECIFIED SPRAYS FOR ASTHMA [Concomitant]
     Indication: ASTHMA
  3. BLOOD PRESSURE PILL [Concomitant]
     Indication: BLOOD PRESSURE

REACTIONS (3)
  - Bowel movement irregularity [Not Recovered/Not Resolved]
  - Diarrhoea [Not Recovered/Not Resolved]
  - Therapeutic response decreased [Unknown]
